FAERS Safety Report 9003753 (Version 1)
Quarter: 2013Q1

REPORT INFORMATION
  Report Type: Spontaneous
  Country: US (occurrence: US)
  Receive Date: 20130108
  Receipt Date: 20130108
  Transmission Date: 20140127
  Serious: No
  Sender: FDA-Public Use
  Company Number: US-GLAXOSMITHKLINE-A0972362A

PATIENT
  Age: 47 Year
  Sex: Male

DRUGS (12)
  1. LOVAZA [Suspect]
     Indication: LOW DENSITY LIPOPROTEIN
     Dosage: 2G TWICE PER DAY
     Route: 048
     Dates: start: 201201
  2. CLONAZEPAM [Concomitant]
  3. TRAZODONE [Concomitant]
  4. MINOCYCLINE [Concomitant]
  5. ISENTRESS [Concomitant]
  6. MELOXICAM [Concomitant]
  7. CYMBALTA [Concomitant]
  8. KALETRA [Concomitant]
  9. EMTRIVA [Concomitant]
  10. FLONASE [Concomitant]
  11. METOPROLOL [Concomitant]
  12. LISINOPRIL [Concomitant]

REACTIONS (2)
  - Skin odour abnormal [Unknown]
  - Urine odour abnormal [Unknown]
